FAERS Safety Report 6170331-6 (Version None)
Quarter: 2009Q2

REPORT INFORMATION
  Report Type: 
  Country: None (occurrence: None)
  Receive Date: 20090427
  Receipt Date: 20090427
  Transmission Date: 20091009
  Serious: No
  Sender: FDA-Public Use
  Company Number: None

PATIENT
  Sex: Female
  Weight: 69.8539 kg

DRUGS (1)
  1. CYTRA - K. CRYSTALS NDC 60258-005-01 [Suspect]
     Indication: NEPHROLITHIASIS
     Dosage: 1-PACKET 3 X A DAY IN WATER
     Dates: start: 20090402, end: 20090406

REACTIONS (5)
  - CHILLS [None]
  - DIARRHOEA [None]
  - FATIGUE [None]
  - FEELING COLD [None]
  - MOOD SWINGS [None]
